FAERS Safety Report 5655824-X (Version None)
Quarter: 2008Q1

REPORT INFORMATION
  Report Type: 
  Country: None (occurrence: None)
  Receive Date: 20080307
  Receipt Date: 20080226
  Transmission Date: 20080703
  Serious: Yes (Other)
  Sender: FDA-Public Use
  Company Number: US-PFIZER INC-2008010750

PATIENT
  Sex: Male

DRUGS (1)
  1. DILANTIN [Suspect]
     Indication: CONVULSION

REACTIONS (4)
  - DRUG INEFFECTIVE [None]
  - DRUG LEVEL DECREASED [None]
  - EMOTIONAL DISORDER [None]
  - GRAND MAL CONVULSION [None]
